FAERS Safety Report 15964442 (Version 1)
Quarter: 2019Q1

REPORT INFORMATION
  Report Type: Report from Study
  Country: None (occurrence: CO)
  Receive Date: 20190215
  Receipt Date: 20190215
  Transmission Date: 20190417
  Serious: Yes (Hospitalization)
  Sender: FDA-Public Use
  Company Number: CO-ABBVIE-19K-036-2665770-00

PATIENT
  Age: 27 Year
  Sex: Male
  Weight: 70 kg

DRUGS (4)
  1. HUMIRA [Suspect]
     Active Substance: ADALIMUMAB
     Indication: COLITIS ULCERATIVE
     Route: 058
     Dates: start: 20160217
  2. AZATHIOPRINE. [Concomitant]
     Active Substance: AZATHIOPRINE
     Indication: PRODUCT USED FOR UNKNOWN INDICATION
  3. MESALAZINE [Concomitant]
     Active Substance: MESALAMINE
     Indication: PRODUCT USED FOR UNKNOWN INDICATION
  4. HUMIRA [Suspect]
     Active Substance: ADALIMUMAB
     Indication: COLITIS ULCERATIVE
     Route: 058

REACTIONS (7)
  - Colonoscopy abnormal [Unknown]
  - Asthenia [Recovering/Resolving]
  - Colitis ulcerative [Recovering/Resolving]
  - Melaena [Recovering/Resolving]
  - Haemoglobin decreased [Unknown]
  - Gastrointestinal disorder [Recovering/Resolving]
  - Faecal calprotectin abnormal [Unknown]

NARRATIVE: CASE EVENT DATE: 201811
